FAERS Safety Report 11580202 (Version 1)
Quarter: 2015Q3

REPORT INFORMATION
  Report Type: Spontaneous
  Country: US (occurrence: US)
  Receive Date: 20150930
  Receipt Date: 20150930
  Transmission Date: 20151125
  Serious: Yes (Other)
  Sender: FDA-Public Use
  Company Number: US-LUNDBECK-DKLU2004524

PATIENT
  Age: 49 Year
  Sex: Female

DRUGS (2)
  1. ONFI [Suspect]
     Active Substance: CLOBAZAM
     Indication: LENNOX-GASTAUT SYNDROME
  2. ONFI [Suspect]
     Active Substance: CLOBAZAM
     Indication: SEIZURE
     Route: 048
     Dates: start: 201409

REACTIONS (1)
  - Seizure [Unknown]

NARRATIVE: CASE EVENT DATE: 201509
